FAERS Safety Report 26021018 (Version 1)
Quarter: 2025Q4

REPORT INFORMATION
  Report Type: Spontaneous
  Country: EU (occurrence: EU)
  Receive Date: 20251110
  Receipt Date: 20251110
  Transmission Date: 20260118
  Serious: Yes (Other)
  Sender: AMGEN
  Company Number: EU-AMGEN-ROUSP2025220421

PATIENT
  Age: 77 Year
  Sex: Female

DRUGS (8)
  1. TRASTUZUMAB [Suspect]
     Active Substance: TRASTUZUMAB
     Indication: HER2 positive breast cancer
     Dosage: UNK
     Route: 065
  2. TRASTUZUMAB [Suspect]
     Active Substance: TRASTUZUMAB
     Dosage: UNK
     Route: 065
     Dates: start: 202011
  3. DOCETAXEL [Concomitant]
     Active Substance: DOCETAXEL
  4. LETROZOLE [Concomitant]
     Active Substance: LETROZOLE
  5. PERTUZUMAB [Concomitant]
     Active Substance: PERTUZUMAB
     Dosage: UNK
     Dates: start: 202011
  6. ADO-TRASTUZUMAB EMTANSINE [Concomitant]
     Active Substance: ADO-TRASTUZUMAB EMTANSINE
     Dosage: UNK
     Dates: end: 202301
  7. FULVESTRANT [Concomitant]
     Active Substance: FULVESTRANT
  8. CAPECITABINE [Concomitant]
     Active Substance: CAPECITABINE

REACTIONS (11)
  - Breast cancer metastatic [Unknown]
  - Metastases to lymph nodes [Unknown]
  - Portal vein thrombosis [Recovering/Resolving]
  - Portal hypertension [Unknown]
  - Pneumonitis [Unknown]
  - Therapy partial responder [Unknown]
  - Skin lesion [Recovered/Resolved]
  - Lymphatic disorder [Unknown]
  - Off label use [Unknown]
  - Nausea [Unknown]
  - Fatigue [Unknown]

NARRATIVE: CASE EVENT DATE: 20241101
